FAERS Safety Report 6631120-9 (Version None)
Quarter: 2010Q1

REPORT INFORMATION
  Report Type: 
  Country: None (occurrence: None)
  Receive Date: 20100309
  Receipt Date: 20100222
  Transmission Date: 20100710
  Serious: Yes (Hospitalization)
  Sender: FDA-Public Use
  Company Number: 237097K09USA

PATIENT
  Age: 47 Year
  Sex: Female
  Weight: 42 kg

DRUGS (4)
  1. REBIF [Suspect]
     Indication: MULTIPLE SCLEROSIS
     Dosage: 44 MCG, 3 IN 1 WEEKS, SUBCUTANEOUS
     Route: 058
     Dates: start: 20090325, end: 20090819
  2. BACLOFEN [Concomitant]
  3. LEXAPRO [Concomitant]
  4. VESICARE [Concomitant]

REACTIONS (5)
  - BACTERIAL TEST POSITIVE [None]
  - CONDITION AGGRAVATED [None]
  - DYSURIA [None]
  - MULTIPLE SCLEROSIS [None]
  - URINARY TRACT INFECTION [None]
